FAERS Safety Report 6187714-0 (Version None)
Quarter: 2009Q2

REPORT INFORMATION
  Report Type: 
  Country: None (occurrence: None)
  Receive Date: 20090513
  Receipt Date: 20090506
  Transmission Date: 20091009
  Serious: Yes (Other)
  Sender: FDA-Public Use
  Company Number: US-ASTRAZENECA-2009UW11532

PATIENT
  Age: 21 Year
  Sex: Male

DRUGS (5)
  1. CRESTOR [Suspect]
     Route: 048
  2. CLONIDINE [Concomitant]
  3. RISPERDAL [Concomitant]
  4. CARBATROL [Concomitant]
  5. TOPAMAX [Concomitant]

REACTIONS (1)
  - CONVULSION [None]
